FAERS Safety Report 13533331 (Version 1)
Quarter: 2017Q2

REPORT INFORMATION
  Report Type: Spontaneous
  Country: RU (occurrence: RU)
  Receive Date: 20170510
  Receipt Date: 20170510
  Transmission Date: 20170830
  Serious: Yes (Other)
  Sender: FDA-Public Use
  Company Number: RU-BAYER-2017-084090

PATIENT
  Age: 27 Year
  Sex: Female

DRUGS (1)
  1. YAZ [Suspect]
     Active Substance: DROSPIRENONE\ETHINYL ESTRADIOL
     Route: 048

REACTIONS (6)
  - Ectopic pregnancy [None]
  - Metrorrhagia [None]
  - Abdominal pain lower [None]
  - Dizziness [None]
  - Nausea [None]
  - Maternal exposure before pregnancy [None]

NARRATIVE: CASE EVENT DATE: 201703
